FAERS Safety Report 18565591 (Version 1)
Quarter: 2020Q4

REPORT INFORMATION
  Report Type: Spontaneous
  Country: US (occurrence: US)
  Receive Date: 20201201
  Receipt Date: 20201201
  Transmission Date: 20210114
  Serious: Yes (Disabling, Other)
  Sender: FDA-Public Use
  Company Number: None

PATIENT
  Age: 76 Year
  Sex: Female
  Weight: 95.4 kg

DRUGS (15)
  1. KEPPRA [Suspect]
     Active Substance: LEVETIRACETAM
     Indication: SEIZURE
     Route: 048
  2. METROPOLOL [Concomitant]
     Active Substance: METOPROLOL
  3. LANSOPRAZOLE. [Concomitant]
     Active Substance: LANSOPRAZOLE
  4. MINERALS [Concomitant]
     Active Substance: MINERALS
  5. ASA LODOSE [Concomitant]
  6. BREO ELLIPTA [Concomitant]
     Active Substance: FLUTICASONE FUROATE\VILANTEROL TRIFENATATE
  7. KEPPRA [Suspect]
     Active Substance: LEVETIRACETAM
     Indication: TREMOR
     Route: 048
  8. LATUDA [Concomitant]
     Active Substance: LURASIDONE HYDROCHLORIDE
  9. FIBER [Concomitant]
     Active Substance: PSYLLIUM HUSK
  10. ROSUVISTATIN [Concomitant]
  11. ALBUTEROL. [Concomitant]
     Active Substance: ALBUTEROL
  12. ISOSORB [Concomitant]
  13. PROBIOTICS [Concomitant]
     Active Substance: PROBIOTICS NOS
  14. VITAMINS [Concomitant]
     Active Substance: VITAMINS
  15. DILANTIN [Concomitant]
     Active Substance: PHENYTOIN

REACTIONS (11)
  - Vertigo [None]
  - Seizure [None]
  - Constipation [None]
  - Condition aggravated [None]
  - Nystagmus [None]
  - Nausea [None]
  - Confusional state [None]
  - Malaise [None]
  - Tremor [None]
  - Vomiting [None]
  - Weight decreased [None]

NARRATIVE: CASE EVENT DATE: 20200915
